FAERS Safety Report 10915659 (Version 2)
Quarter: 2015Q2

REPORT INFORMATION
  Report Type: Spontaneous
  Country: US (occurrence: US)
  Receive Date: 20150316
  Receipt Date: 20150507
  Transmission Date: 20150821
  Serious: No
  Sender: FDA-Public Use
  Company Number: US-PFIZER INC-2015089388

PATIENT
  Age: 46 Year
  Sex: Male
  Weight: 118 kg

DRUGS (1)
  1. FLECTOR [Suspect]
     Active Substance: DICLOFENAC EPOLAMINE
     Indication: ARTHRITIS
     Dosage: UNK

REACTIONS (3)
  - Product adhesion issue [Unknown]
  - Intentional product misuse [Unknown]
  - Drug ineffective [Unknown]
